FAERS Safety Report 25530727 (Version 1)
Quarter: 2025Q3

REPORT INFORMATION
  Report Type: Spontaneous
  Country: CN (occurrence: CN)
  Receive Date: 20250708
  Receipt Date: 20250708
  Transmission Date: 20251021
  Serious: Yes (Other)
  Sender: NOVARTIS
  Company Number: CN-002147023-NVSC2025CN106964

PATIENT
  Age: 31 Year
  Sex: Male
  Weight: 34 kg

DRUGS (5)
  1. CYCLOSPORINE [Suspect]
     Active Substance: CYCLOSPORINE
     Indication: Graft versus host disease
     Dosage: 35 MG, BID
     Route: 041
     Dates: start: 20250518, end: 20250612
  2. VORICONAZOLE [Suspect]
     Active Substance: VORICONAZOLE
     Indication: Fungal infection
     Dosage: 0.2 G, BID
     Route: 041
     Dates: start: 20250520, end: 20250612
  3. MYCOPHENOLATE MOFETIL [Concomitant]
     Active Substance: MYCOPHENOLATE MOFETIL
     Indication: Graft versus host disease
     Dosage: 0.50 G, BID
     Route: 041
     Dates: start: 20250526, end: 20250618
  4. METHYLPREDNISOLONE SODIUM SUCCINATE [Concomitant]
     Active Substance: METHYLPREDNISOLONE SODIUM SUCCINATE
     Indication: Graft versus host disease
     Dosage: 35 MG, BID
     Route: 042
     Dates: start: 20250604, end: 20250618
  5. RUXOLITINIB PHOSPHATE [Concomitant]
     Active Substance: RUXOLITINIB PHOSPHATE
     Indication: Graft versus host disease
     Dosage: 10 MG, BID
     Route: 048
     Dates: start: 20250515, end: 20250618

REACTIONS (5)
  - Toxic encephalopathy [Unknown]
  - Reduced facial expression [Recovering/Resolving]
  - Dyscalculia [Recovering/Resolving]
  - White matter lesion [Unknown]
  - Magnetic resonance imaging head abnormal [Unknown]

NARRATIVE: CASE EVENT DATE: 20250612
